FAERS Safety Report 5275497-8 (Version None)
Quarter: 2007Q1

REPORT INFORMATION
  Report Type: 
  Country: None (occurrence: None)
  Receive Date: 20070326
  Receipt Date: 20070314
  Transmission Date: 20070707
  Serious: Yes (Hospitalization)
  Sender: FDA-Public Use
  Company Number: GB-ROCHE-488512

PATIENT
  Age: 69 Year
  Sex: Female
  Weight: 101.6 kg

DRUGS (3)
  1. XENICAL [Suspect]
     Indication: OBESITY
     Route: 048
     Dates: start: 20060907, end: 20070309
  2. UNSPECIFIED DRUG [Concomitant]
     Indication: HYPERTENSION
  3. UNSPECIFIED DRUG [Concomitant]
     Indication: HYPOTHYROIDISM

REACTIONS (1)
  - CEREBROVASCULAR ACCIDENT [None]
